FAERS Safety Report 9608117 (Version 1)
Quarter: 2013Q4

REPORT INFORMATION
  Report Type: Spontaneous
  Country: TR (occurrence: None)
  Receive Date: 20131007
  Receipt Date: 20131007
  Transmission Date: 20140711
  Serious: Yes (Other)
  Sender: FDA-Public Use
  Company Number: 2013P1019735

PATIENT
  Age: 16 Year
  Sex: Male

DRUGS (1)
  1. AMOXICILLIN + CLAVULANATE POTASSIUM [Suspect]
     Indication: OROPHARYNGEAL PAIN
     Dosage: 1 GM; PO
     Route: 048

REACTIONS (4)
  - Kounis syndrome [None]
  - Myocarditis [None]
  - Electrocardiogram T wave inversion [None]
  - Electrocardiogram ST segment elevation [None]
